FAERS Safety Report 20893734 (Version 2)
Quarter: 2022Q2

REPORT INFORMATION
  Report Type: Other
  Country: FR (occurrence: FR)
  Receive Date: 20220531
  Receipt Date: 20220603
  Transmission Date: 20220720
  Serious: Yes (Hospitalization, Other)
  Sender: FDA-Public Use
  Company Number: None

PATIENT
  Age: 71 Year
  Sex: Male

DRUGS (13)
  1. SOLIFENACIN [Suspect]
     Active Substance: SOLIFENACIN
     Indication: Prostatomegaly
     Route: 048
  2. TOUJEO [Suspect]
     Active Substance: INSULIN GLARGINE
     Indication: Type 2 diabetes mellitus
     Dosage: UNK UNK, UNKNOWN FREQ.
     Route: 058
  3. PYGEUM [Suspect]
     Active Substance: PYGEUM
     Indication: Prostatomegaly
     Route: 048
  4. NOVORAPID [Suspect]
     Active Substance: INSULIN ASPART
     Indication: Type 2 diabetes mellitus
     Dosage: UNK UNK, UNKNOWN FREQ.
     Route: 058
  5. INDAPAMIDE\PERINDOPRIL [Suspect]
     Active Substance: INDAPAMIDE\PERINDOPRIL
     Indication: Hypertension
     Dosage: UNK UNK, ONCE DAILY
     Route: 048
  6. CHOLESTYRAMINE [Suspect]
     Active Substance: CHOLESTYRAMINE
     Indication: Hypertriglyceridaemia
     Route: 048
  7. COLCHICINE [Suspect]
     Active Substance: COLCHICINE
     Indication: Gout
     Dosage: UNK UNK, ONCE DAILY
     Route: 048
  8. EZETIMIBE AND SIMVASTATIN [Suspect]
     Active Substance: EZETIMIBE\SIMVASTATIN
     Indication: Hypertriglyceridaemia
     Route: 048
  9. MANIDIPINE HYDROCHLORIDE [Suspect]
     Active Substance: MANIDIPINE HYDROCHLORIDE
     Indication: Hypertension
     Route: 048
  10. VENLAFAXINE [Suspect]
     Active Substance: VENLAFAXINE HYDROCHLORIDE
     Indication: Depression
     Route: 048
  11. ALLOPURINOL [Suspect]
     Active Substance: ALLOPURINOL
     Indication: Gout
     Dosage: UNK UNK, UNKNOWN FREQ.
     Route: 048
  12. MIRTAZAPINE [Suspect]
     Active Substance: MIRTAZAPINE
     Indication: Depression
     Dosage: UNK UNK, ONCE DAILY (15 MG 2 IN THE EVENING)
     Route: 048
  13. LAUROMACROGOL [Concomitant]
     Indication: Constipation
     Dosage: UNK UNK, AS NEEDED
     Route: 048

REACTIONS (2)
  - Thrombocytopenia [Not Recovered/Not Resolved]
  - Anaemia [Not Recovered/Not Resolved]

NARRATIVE: CASE EVENT DATE: 20220429
